FAERS Safety Report 6587898-6 (Version None)
Quarter: 2010Q1

REPORT INFORMATION
  Report Type: 
  Country: None (occurrence: None)
  Receive Date: 20100218
  Receipt Date: 20100210
  Transmission Date: 20100710
  Serious: Yes (Hospitalization, Other)
  Sender: FDA-Public Use
  Company Number: JP-JNJFOC-20091107880

PATIENT
  Sex: Male

DRUGS (12)
  1. RISPERDAL [Suspect]
     Indication: SCHIZOPHRENIA
     Route: 048
  2. RISPERDAL [Suspect]
     Route: 048
  3. ALEVIATIN [Concomitant]
     Indication: EPILEPSY
     Route: 048
  4. DEPAKENE [Concomitant]
     Indication: EPILEPSY
     Route: 048
  5. TASMOLIN [Concomitant]
     Indication: PARKINSONISM
     Route: 048
  6. TASMOLIN [Concomitant]
     Route: 048
  7. TASMOLIN [Concomitant]
     Route: 048
  8. RIVOTRIL [Concomitant]
     Indication: PARKINSONISM
     Route: 048
  9. RIVOTRIL [Concomitant]
     Route: 048
  10. RIVOTRIL [Concomitant]
     Route: 048
  11. ROHYPNOL [Concomitant]
     Indication: INSOMNIA
     Route: 048
  12. ROHYPNOL [Concomitant]
     Route: 048

REACTIONS (2)
  - DYSPHAGIA [None]
  - PNEUMONIA [None]
